FAERS Safety Report 6063900-5 (Version None)
Quarter: 2009Q1

REPORT INFORMATION
  Report Type: 
  Country: None (occurrence: None)
  Receive Date: 20090204
  Receipt Date: 20090121
  Transmission Date: 20090719
  Serious: Yes (Hospitalization)
  Sender: FDA-Public Use
  Company Number: US-ELI_LILLY_AND_COMPANY-US200901003587

PATIENT
  Sex: Female

DRUGS (2)
  1. FORTEO [Suspect]
     Dosage: 20 UG, UNK
  2. NITROGLYCERIN [Concomitant]
     Indication: CHEST PAIN
     Dosage: UNK, AS NEEDED

REACTIONS (3)
  - CONTUSION [None]
  - INJECTION SITE MASS [None]
  - VASCULAR OCCLUSION [None]
